FAERS Safety Report 25674815 (Version 1)
Quarter: 2025Q3

REPORT INFORMATION
  Report Type: Spontaneous
  Country: CN (occurrence: CN)
  Receive Date: 20250813
  Receipt Date: 20250813
  Transmission Date: 20251021
  Serious: Yes (Hospitalization, Other)
  Sender: ASTELLAS
  Company Number: CN-ASTELLAS-2025-AER-044324

PATIENT
  Age: 7 Decade
  Sex: Male

DRUGS (2)
  1. ISAVUCONAZOLE [Suspect]
     Active Substance: ISAVUCONAZOLE
     Indication: Aspergillus infection
     Dosage: CONCENTRATE FOR SOLUTION FOR INFUSION
     Route: 065
  2. ISAVUCONAZOLE [Suspect]
     Active Substance: ISAVUCONAZOLE
     Indication: Mucormycosis

REACTIONS (3)
  - Psychiatric symptom [Recovering/Resolving]
  - Disorganised speech [Recovering/Resolving]
  - Delirium [Recovering/Resolving]
